FAERS Safety Report 23384784 (Version 2)
Quarter: 2024Q2

REPORT INFORMATION
  Report Type: Spontaneous
  Country: IT (occurrence: IT)
  Receive Date: 20240109
  Receipt Date: 20240402
  Transmission Date: 20240716
  Serious: Yes (Other)
  Sender: FDA-Public Use
  Company Number: None

PATIENT
  Age: 89 Year
  Sex: Female
  Weight: 60 kg

DRUGS (8)
  1. ELIQUIS [Suspect]
     Active Substance: APIXABAN
     Indication: Atrial fibrillation
     Dosage: ELIQUIS 60CPR RIV 5MG - DOSAGE SCHEDULE: 2 CPR/DAY - ON 19/05/2023 DOSAGE REDUCTION TO ELIQUIS*60CPR
     Route: 048
  2. ELIQUIS [Suspect]
     Active Substance: APIXABAN
     Dosage: ELIQUIS 60CPR RIV 5MG - DOSAGE SCHEDULE: 2 CPR/DAY - ON 19/05/2023 DOSAGE REDUCTION TO ELIQUIS*60CPR
     Route: 048
     Dates: start: 20230519
  3. METFORMIN HYDROCHLORIDE [Concomitant]
     Active Substance: METFORMIN HYDROCHLORIDE
     Indication: Type 2 diabetes mellitus
     Dosage: METFORAL*50CPR RIV 500MG - 2 CP DAY
     Route: 048
     Dates: start: 2023
  4. LEVOTHYROXINE SODIUM [Concomitant]
     Active Substance: LEVOTHYROXINE SODIUM
     Indication: Hypothyroidism
     Dosage: EUTIROX*50CPR 75MCG - 1 CP/DAY (5 DAYS A WEEK) - EUTIROX*50CPR 100MCG - 1 CP/DAY (2 DAYS A WEEK)
     Route: 048
     Dates: start: 2023
  5. METOPROLOL TARTRATE [Concomitant]
     Active Substance: METOPROLOL TARTRATE
     Indication: Hypertensive heart disease
     Dosage: METOPROLOL HEX*30CPR 100MG- 1 CP/DAY IN THE MORNING
     Route: 048
     Dates: start: 2023
  6. SIMVASTATIN [Concomitant]
     Active Substance: SIMVASTATIN
     Indication: Dyslipidaemia
     Dosage: SIMVASTATIN MY*28CPR 20MG - 1 CP/DAY IN THE EVENING
     Route: 048
     Dates: start: 2023
  7. RAMIPRIL [Concomitant]
     Active Substance: RAMIPRIL
     Indication: Hypertensive heart disease
     Dosage: QUARK*28CPR DIV 2.5MG -1 CP/DAY
     Route: 048
     Dates: start: 2023
  8. LASIX [Concomitant]
     Active Substance: FUROSEMIDE
     Indication: Hypertensive heart disease
     Dosage: LASIX*30CPR 25MG - 1 CP/DAY
     Route: 048
     Dates: start: 2023

REACTIONS (3)
  - Renal failure [Not Recovered/Not Resolved]
  - Glomerular filtration rate decreased [Recovering/Resolving]
  - Blood creatinine increased [Recovering/Resolving]

NARRATIVE: CASE EVENT DATE: 20230501
